FAERS Safety Report 22320435 (Version 4)
Quarter: 2023Q4

REPORT INFORMATION
  Report Type: Spontaneous
  Country: US (occurrence: US)
  Receive Date: 20230515
  Receipt Date: 20231109
  Transmission Date: 20240110
  Serious: No
  Sender: FDA-Public Use
  Company Number: US-SA-SAC20230511000440

PATIENT
  Age: 83 Year
  Sex: Female

DRUGS (4)
  1. DUPIXENT [Suspect]
     Active Substance: DUPILUMAB
     Indication: Dermatitis atopic
     Dosage: 600 MG, 1X
     Route: 058
     Dates: start: 202202, end: 202202
  2. DUPIXENT [Suspect]
     Active Substance: DUPILUMAB
     Dosage: 300 MG, QOW
     Route: 058
     Dates: start: 2022
  3. ALLEGRA [Concomitant]
     Active Substance: FEXOFENADINE HYDROCHLORIDE
  4. OFLOXACIN [Concomitant]
     Active Substance: OFLOXACIN
     Dosage: UNK

REACTIONS (5)
  - Ear infection [Unknown]
  - Ear haemorrhage [Unknown]
  - Excessive cerumen production [Unknown]
  - Eczema [Unknown]
  - Rash [Recovered/Resolved]
